FAERS Safety Report 18651459 (Version 1)
Quarter: 2020Q4

REPORT INFORMATION
  Report Type: Spontaneous
  Country: DE (occurrence: DE)
  Receive Date: 20201223
  Receipt Date: 20201223
  Transmission Date: 20210114
  Serious: Yes (Hospitalization, Other)
  Sender: FDA-Public Use
  Company Number: DE-JNJFOC-20201237886

PATIENT
  Age: 90 Year
  Sex: Male

DRUGS (4)
  1. CEFPODOXIME [Suspect]
     Active Substance: CEFPODOXIME
     Dosage: 200 MG, BID
  2. AMBROXOL [Concomitant]
     Active Substance: AMBROXOL
     Dosage: 75 MG, QD
  3. CLOBUTINOL HYDROCHLORIDE [Concomitant]
     Active Substance: CLOBUTINOL HYDROCHLORIDE
     Dosage: 0-0-0-1, SYRUP
  4. RIVAROXABAN [Suspect]
     Active Substance: RIVAROXABAN
     Indication: PRODUCT USED FOR UNKNOWN INDICATION
     Route: 048

REACTIONS (3)
  - Anaemia [Unknown]
  - Diarrhoea [Unknown]
  - Haematochezia [Unknown]
